FAERS Safety Report 6321813-5 (Version None)
Quarter: 2009Q3

REPORT INFORMATION
  Report Type: 
  Country: None (occurrence: None)
  Receive Date: 20090824
  Receipt Date: 20090803
  Transmission Date: 20100115
  Serious: Yes (Death)
  Sender: FDA-Public Use
  Company Number: ZA-BRISTOL-MYERS SQUIBB COMPANY-14750954

PATIENT
  Age: 39 Year
  Sex: Male

DRUGS (4)
  1. EFAVIRENZ [Suspect]
     Indication: HIV INFECTION
     Route: 048
     Dates: start: 20090526, end: 20090730
  2. TRUVADA [Suspect]
     Indication: HIV INFECTION
     Route: 048
     Dates: start: 20090526, end: 20090626
  3. RIFAFOUR [Concomitant]
     Dates: end: 20090730
  4. STREPTOMYCIN [Concomitant]
     Dates: end: 20090730

REACTIONS (1)
  - PULMONARY TUBERCULOSIS [None]
